FAERS Safety Report 8183646-7 (Version None)
Quarter: 2012Q1

REPORT INFORMATION
  Report Type: 
  Country: None (occurrence: None)
  Receive Date: 20120305
  Receipt Date: 20120223
  Transmission Date: 20120608
  Serious: Yes (Death, Hospitalization)
  Sender: FDA-Public Use
  Company Number: DE-JNJFOC-20120211596

PATIENT
  Age: 76 Year
  Sex: Male

DRUGS (2)
  1. STELARA [Suspect]
     Indication: PSORIASIS
     Route: 058
     Dates: start: 20120208, end: 20120208
  2. STELARA [Suspect]
     Route: 058
     Dates: start: 20120109, end: 20120109

REACTIONS (8)
  - RENAL FUNCTION TEST ABNORMAL [None]
  - FATIGUE [None]
  - VOMITING [None]
  - BLAST CELL CRISIS [None]
  - LIVER FUNCTION TEST ABNORMAL [None]
  - BLOOD ALKALINE PHOSPHATASE INCREASED [None]
  - DEATH [None]
  - ACUTE LYMPHOCYTIC LEUKAEMIA [None]
